FAERS Safety Report 6005575-7 (Version None)
Quarter: 2008Q4

REPORT INFORMATION
  Report Type: 
  Country: None (occurrence: None)
  Receive Date: 20081217
  Receipt Date: 20081211
  Transmission Date: 20090506
  Serious: Yes (Other)
  Sender: FDA-Public Use
  Company Number: US-BIOGENIDEC-2008BI033818

PATIENT
  Age: 53 Year
  Sex: Female

DRUGS (2)
  1. AVONEX [Suspect]
     Indication: MULTIPLE SCLEROSIS
     Route: 030
     Dates: start: 20011211, end: 20070401
  2. AVONEX [Suspect]
     Route: 030
     Dates: start: 20080424

REACTIONS (2)
  - MELANOCYTIC NAEVUS [None]
  - SKIN CANCER [None]
